FAERS Safety Report 25250165 (Version 1)
Quarter: 2025Q2

REPORT INFORMATION
  Report Type: Spontaneous
  Country: JP (occurrence: JP)
  Receive Date: 20250429
  Receipt Date: 20250429
  Transmission Date: 20250717
  Serious: Yes (Death, Other)
  Sender: UNICHEM
  Company Number: JP-UNICHEM LABORATORIES LIMITED-UNI-2025-JP-001985

PATIENT

DRUGS (9)
  1. TRAMADOL [Suspect]
     Active Substance: TRAMADOL
     Indication: Pain
     Route: 065
  2. BROMAZEPAM [Suspect]
     Active Substance: BROMAZEPAM
     Indication: Product used for unknown indication
     Route: 065
  3. CLOTIAZEPAM [Suspect]
     Active Substance: CLOTIAZEPAM
     Indication: Product used for unknown indication
     Route: 065
  4. 3-HYDROXYFLUNITRAZEPAM [Suspect]
     Active Substance: 3-HYDROXYFLUNITRAZEPAM
     Indication: Product used for unknown indication
     Route: 065
  5. 7-AMINOFLUNITRAZEPAM [Suspect]
     Active Substance: 7-AMINOFLUNITRAZEPAM
     Indication: Product used for unknown indication
     Route: 065
  6. 7-AMINONITRAZEPAM [Suspect]
     Active Substance: 7-AMINONITRAZEPAM
     Indication: Product used for unknown indication
     Route: 065
  7. ACETAMINOPHEN [Concomitant]
     Active Substance: ACETAMINOPHEN
     Indication: Product used for unknown indication
     Route: 065
  8. PREGABALIN [Concomitant]
     Active Substance: PREGABALIN
     Indication: Product used for unknown indication
     Route: 065
  9. METFORMIN [Concomitant]
     Active Substance: METFORMIN HYDROCHLORIDE
     Indication: Diabetes mellitus
     Route: 065

REACTIONS (3)
  - Toxicity to various agents [Fatal]
  - Cardio-respiratory arrest [Fatal]
  - Depressed level of consciousness [Fatal]
